FAERS Safety Report 9321419 (Version 1)
Quarter: 2013Q2

REPORT INFORMATION
  Report Type: Spontaneous
  Country: ES (occurrence: ES)
  Receive Date: 20130531
  Receipt Date: 20130531
  Transmission Date: 20140414
  Serious: Yes (Other)
  Sender: FDA-Public Use
  Company Number: ES-PFIZER INC-2013162870

PATIENT
  Age: 30 Year
  Sex: Male

DRUGS (3)
  1. CISPLANTIN [Suspect]
     Indication: GERM CELL CANCER
     Dosage: 36 G, CYCLIC, EVERY 15 DAYS
     Route: 042
     Dates: start: 20130325, end: 20130329
  2. BLEOMYCIN [Concomitant]
     Indication: GERM CELL CANCER
     Dosage: 30 MG, CYCLIC, EVERY 7 DAYS
     Route: 042
     Dates: start: 20130402, end: 20130402
  3. ETOPOSIDE-TEVA [Concomitant]
     Indication: GERM CELL CANCER
     Dosage: 180 MG, CYCLIC, EVERY 15 DAYS
     Route: 042
     Dates: start: 20130325, end: 20130329

REACTIONS (5)
  - Dizziness [Recovered/Resolved]
  - Fall [Recovered/Resolved]
  - Syncope [Recovered/Resolved]
  - Autonomic nervous system imbalance [Recovered/Resolved]
  - Orthostatic hypotension [Recovered/Resolved]
